FAERS Safety Report 23170146 (Version 1)
Quarter: 2023Q4

REPORT INFORMATION
  Report Type: Spontaneous
  Country: US (occurrence: US)
  Receive Date: 20231110
  Receipt Date: 20231110
  Transmission Date: 20240110
  Serious: Yes (Other)
  Sender: FDA-Public Use
  Company Number: US-AUROBINDO-AUR-APL-2023-067650

PATIENT
  Sex: Female

DRUGS (1)
  1. DEXTROAMPHET SACCHARAT, AMPHET ASPARTATE, DEXTROAMPHET SULFATE AND AMP [Suspect]
     Active Substance: AMPHETAMINE ASPARTATE\AMPHETAMINE ASPARTATE MONOHYDRATE\AMPHETAMINE SULFATE\DEXTROAMPHETAMINE SACCHA
     Indication: Attention deficit hyperactivity disorder
     Dosage: 20 MILLIGRAM, TWO TIMES A DAY
     Route: 048

REACTIONS (17)
  - Loss of consciousness [Unknown]
  - Brain fog [Unknown]
  - Migraine [Unknown]
  - Night sweats [Unknown]
  - Hot flush [Unknown]
  - Cold sweat [Unknown]
  - Chills [Unknown]
  - Nasopharyngitis [Unknown]
  - Palpitations [Unknown]
  - Headache [Unknown]
  - Crying [Unknown]
  - Feeling abnormal [Unknown]
  - Nausea [Unknown]
  - Decreased interest [Unknown]
  - Condition aggravated [Unknown]
  - Intentional underdose [Unknown]
  - Drug ineffective [Unknown]
